FAERS Safety Report 25322368 (Version 1)
Quarter: 2025Q2

REPORT INFORMATION
  Report Type: Report from Study
  Country: US (occurrence: US)
  Receive Date: 20250516
  Receipt Date: 20250516
  Transmission Date: 20250716
  Serious: Yes (Other)
  Sender: ACADIA PHARMACEUTICALS
  Company Number: US-ACADIA PHARMACEUTICALS INC.-ACA-2025-PIM-005485

PATIENT
  Sex: Male

DRUGS (3)
  1. NUPLAZID [Suspect]
     Active Substance: PIMAVANSERIN TARTRATE
     Indication: Parkinson^s disease
     Route: 065
  2. RIVASTIGMINE [Suspect]
     Active Substance: RIVASTIGMINE
     Indication: Hallucination
  3. MIDODRINE [Concomitant]
     Active Substance: MIDODRINE
     Indication: Orthostatic hypotension

REACTIONS (21)
  - Hallucination [Recovering/Resolving]
  - Speech disorder [Recovering/Resolving]
  - Loss of personal independence in daily activities [Unknown]
  - Apathy [Unknown]
  - Paranoia [Recovering/Resolving]
  - Delusion [Recovering/Resolving]
  - Emotional distress [Unknown]
  - Crying [Recovering/Resolving]
  - Stress [Unknown]
  - Insomnia [Unknown]
  - Illness [Unknown]
  - Muscle atrophy [Unknown]
  - Memory impairment [Unknown]
  - Weight decreased [Unknown]
  - Freezing phenomenon [Recovering/Resolving]
  - Mood altered [Recovering/Resolving]
  - General physical health deterioration [Unknown]
  - Abnormal behaviour [Unknown]
  - Confusional state [Unknown]
  - Gait disturbance [Recovering/Resolving]
  - Fall [Unknown]
